FAERS Safety Report 9878036 (Version 1)
Quarter: 2014Q1

REPORT INFORMATION
  Report Type: Spontaneous
  Country: US (occurrence: None)
  Receive Date: 20140204
  Receipt Date: 20140204
  Transmission Date: 20141002
  Serious: No
  Sender: FDA-Public Use
  Company Number: 1401-0173

PATIENT
  Age: 75 Year
  Sex: Male

DRUGS (3)
  1. EYLEA (AFLIBERCEPT) (INJECTION) (AFLIBERCEPT) [Suspect]
     Indication: RETINAL VEIN OCCLUSION
     Dates: start: 201212, end: 201308
  2. EYLEA (AFLIBERCEPT) (INJECTION) (AFLIBERCEPT) [Suspect]
     Indication: EYE HAEMORRHAGE
     Dates: start: 201212, end: 201308
  3. EYLEA (AFLIBERCEPT) (INJECTION) (AFLIBERCEPT) [Suspect]
     Indication: EYE SWELLING
     Dates: start: 201212, end: 201308

REACTIONS (4)
  - Eye pain [None]
  - Eye irritation [None]
  - Lacrimation increased [None]
  - Ocular hyperaemia [None]
